FAERS Safety Report 5224245-6 (Version None)
Quarter: 2007Q1

REPORT INFORMATION
  Report Type: 
  Country: None (occurrence: None)
  Receive Date: 20070130
  Receipt Date: 20070115
  Transmission Date: 20070707
  Serious: Yes (Hospitalization)
  Sender: FDA-Public Use
  Company Number: US-SHR-US-2006-037178

PATIENT
  Age: 33 Year
  Sex: Female
  Weight: 56.689 kg

DRUGS (2)
  1. BETASERON [Suspect]
     Indication: RELAPSING-REMITTING MULTIPLE SCLEROSIS
     Dosage: 8 MIU, EVERY 2D
     Route: 058
     Dates: start: 19940408
  2. DILTIAZEM [Concomitant]
     Dosage: 30 MG, 2X/DAY

REACTIONS (5)
  - ANKLE FRACTURE [None]
  - BONE DISORDER [None]
  - FALL [None]
  - INJECTION SITE IRRITATION [None]
  - PELVIC FRACTURE [None]
